FAERS Safety Report 7726598-3 (Version None)
Quarter: 2011Q3

REPORT INFORMATION
  Report Type: 
  Country: None (occurrence: None)
  Receive Date: 20110902
  Receipt Date: 20110826
  Transmission Date: 20111222
  Serious: Yes (Death, Hospitalization, Other)
  Sender: FDA-Public Use
  Company Number: PHHY2011ML71641

PATIENT
  Sex: Female
  Weight: 75 kg

DRUGS (1)
  1. GLEEVEC [Suspect]
     Indication: CHRONIC MYELOID LEUKAEMIA
     Dosage: 60 MG DAILY
     Route: 048
     Dates: start: 20110713, end: 20110801

REACTIONS (12)
  - HAEMOGLOBIN DECREASED [None]
  - BONE PAIN [None]
  - DEHYDRATION [None]
  - WHITE BLOOD CELL COUNT INCREASED [None]
  - ARTHRITIS [None]
  - MENTAL DISORDER [None]
  - PYREXIA [None]
  - DEATH [None]
  - PIGMENTATION DISORDER [None]
  - CONJUNCTIVAL PALLOR [None]
  - NODULE [None]
  - JOINT SWELLING [None]
